FAERS Safety Report 10621994 (Version 1)
Quarter: 2014Q4

REPORT INFORMATION
  Report Type: Spontaneous
  Country: US (occurrence: None)
  Receive Date: 20141201
  Receipt Date: 20141201
  Transmission Date: 20150529
  Serious: Yes (Other)
  Sender: FDA-Public Use
  Company Number: None

PATIENT
  Age: 51 Year
  Sex: Female

DRUGS (1)
  1. TRANSDERM SCOP [Suspect]
     Active Substance: SCOPOLAMINE
     Indication: VERTIGO

REACTIONS (6)
  - Feeling abnormal [None]
  - Mobility decreased [None]
  - Nausea [None]
  - Headache [None]
  - Confusional state [None]
  - Drug withdrawal syndrome [None]

NARRATIVE: CASE EVENT DATE: 20131111
